FAERS Safety Report 7262251-0 (Version None)
Quarter: 2011Q1

REPORT INFORMATION
  Report Type: 
  Country: None (occurrence: None)
  Receive Date: 20110130
  Receipt Date: 20101126
  Transmission Date: 20110831
  Serious: No
  Sender: FDA-Public Use
  Company Number: US-ABBOTT-10P-163-0687717-00

PATIENT
  Age: 77 Year
  Sex: Female

DRUGS (12)
  1. PREDNISONE [Suspect]
     Indication: PRODUCT USED FOR UNKNOWN INDICATION
  2. HUMIRA [Suspect]
     Indication: CROHN'S DISEASE
     Dosage: 160MG, 80MG 40MG QOW, DOSE INTERRUPTED
     Dates: start: 20101108, end: 20101120
  3. ATENOLOL [Concomitant]
     Indication: BLOOD PRESSURE
  4. CLONIDINE [Concomitant]
     Indication: BLOOD PRESSURE
  5. ASACOL [Concomitant]
     Indication: COLITIS
  6. POTASSIUM [Concomitant]
     Indication: PRODUCT USED FOR UNKNOWN INDICATION
  7. CRESTOR [Concomitant]
     Indication: BLOOD CHOLESTEROL
  8. VISTOLIC [Concomitant]
     Indication: HYPERTENSION
  9. VICODIN [Concomitant]
     Indication: PAIN
     Dosage: AS NEEDED, EVERY NOW AND THEN
  10. HYDROSCYAMINE [Concomitant]
     Indication: MUSCLE SPASMS
     Route: 060
  11. EXFORGE [Concomitant]
     Indication: BLOOD PRESSURE
     Dosage: 5MG/320MG
  12. FAMOTIDINE [Concomitant]
     Indication: PROPHYLAXIS AGAINST GASTROINTESTINAL ULCER

REACTIONS (1)
  - BLOOD BLISTER [None]
